FAERS Safety Report 14425011 (Version 3)
Quarter: 2018Q2

REPORT INFORMATION
  Report Type: Spontaneous
  Country: JP (occurrence: JP)
  Receive Date: 20180123
  Receipt Date: 20180503
  Transmission Date: 20180711
  Serious: Yes (Hospitalization)
  Sender: FDA-Public Use
  Company Number: JP-JNJFOC-20180125475

PATIENT
  Age: 49 Year
  Sex: Female

DRUGS (5)
  1. QUETIAPINE. [Concomitant]
     Active Substance: QUETIAPINE
     Indication: RESTLESSNESS
     Route: 048
     Dates: start: 20180109
  2. INVEGA [Suspect]
     Active Substance: PALIPERIDONE
     Indication: SCHIZOPHRENIA
     Dosage: PALIPERIDONE:3MG
     Route: 048
     Dates: start: 20171207, end: 20171220
  3. BELSOMRA [Concomitant]
     Active Substance: SUVOREXANT
     Indication: RESTLESSNESS
     Route: 048
     Dates: start: 20180109
  4. AMOBAN [Concomitant]
     Active Substance: ZOPICLONE
     Indication: RESTLESSNESS
     Route: 048
     Dates: start: 20171207
  5. INVEGA [Suspect]
     Active Substance: PALIPERIDONE
     Indication: SCHIZOPHRENIA
     Dosage: PALIPERIDONE:3MG
     Route: 048
     Dates: start: 20171221, end: 20180115

REACTIONS (4)
  - Dysphagia [Recovered/Resolved]
  - Postural reflex impairment [Recovered/Resolved]
  - Tremor [Recovered/Resolved]
  - Gait disturbance [Recovered/Resolved]

NARRATIVE: CASE EVENT DATE: 20180104
